FAERS Safety Report 24971359 (Version 2)
Quarter: 2025Q1

REPORT INFORMATION
  Report Type: Spontaneous
  Country: CA (occurrence: CA)
  Receive Date: 20250214
  Receipt Date: 20250218
  Transmission Date: 20250409
  Serious: Yes (Death, Hospitalization, Other)
  Sender: Kenvue
  Company Number: CA-KENVUE-20250201993

PATIENT

DRUGS (1)
  1. ACETAMINOPHEN [Suspect]
     Active Substance: ACETAMINOPHEN
     Indication: Product used for unknown indication
     Route: 065

REACTIONS (4)
  - Upper gastrointestinal perforation [Fatal]
  - Gastroduodenal ulcer [Fatal]
  - Dyspepsia [Fatal]
  - Gastroduodenal haemorrhage [Fatal]
